FAERS Safety Report 10203419 (Version 1)
Quarter: 2014Q2

REPORT INFORMATION
  Report Type: Spontaneous
  Country: US (occurrence: US)
  Receive Date: 20140529
  Receipt Date: 20140529
  Transmission Date: 20141212
  Serious: Yes (Hospitalization)
  Sender: FDA-Public Use
  Company Number: PHHY2014US061408

PATIENT
  Age: 50 Year
  Sex: Male

DRUGS (2)
  1. ALLOPURINOL [Suspect]
     Dosage: 100 MG, DAILY
  2. COLCHICINE [Suspect]
     Dosage: 0.6 MG, DAILY

REACTIONS (14)
  - Cardiac failure [Unknown]
  - Pneumonia [Unknown]
  - Synovitis [Unknown]
  - Renal failure [Recovered/Resolved]
  - Gingival bleeding [Unknown]
  - Aplastic anaemia [Recovered/Resolved]
  - Gout [Unknown]
  - Joint swelling [Unknown]
  - Fatigue [Recovered/Resolved]
  - Pancytopenia [Recovered/Resolved]
  - Contusion [Unknown]
  - Hyperuricaemia [Unknown]
  - Thrombocytopenia [Unknown]
  - Pain [Recovered/Resolved]
